FAERS Safety Report 13671855 (Version 5)
Quarter: 2017Q3

REPORT INFORMATION
  Report Type: Spontaneous
  Country: BR (occurrence: BR)
  Receive Date: 20170620
  Receipt Date: 20170918
  Transmission Date: 20171127
  Serious: Yes (Hospitalization, Other)
  Sender: FDA-Public Use
  Company Number: BR-ABBVIE-17P-020-2012350-00

PATIENT
  Age: 83 Year
  Sex: Female

DRUGS (3)
  1. VITAMIN D [Concomitant]
     Active Substance: CHOLECALCIFEROL
     Indication: PRODUCT USED FOR UNKNOWN INDICATION
  2. DEPAKOTE ER [Suspect]
     Active Substance: DIVALPROEX SODIUM
     Indication: PRODUCT USED FOR UNKNOWN INDICATION
     Dosage: 500 MG AT NIGHT
     Route: 065
  3. AMLODIPINE [Concomitant]
     Active Substance: AMLODIPINE BESYLATE
     Indication: PRODUCT USED FOR UNKNOWN INDICATION

REACTIONS (15)
  - Cerebrovascular accident [Unknown]
  - Dysphagia [Not Recovered/Not Resolved]
  - Aspiration [Recovered/Resolved]
  - Movement disorder [Unknown]
  - Incorrect dose administered [Unknown]
  - Skin haemorrhage [Recovered/Resolved]
  - Blood pressure increased [Not Recovered/Not Resolved]
  - Decubitus ulcer [Recovering/Resolving]
  - Wrong technique in product usage process [Not Recovered/Not Resolved]
  - Skin wound [Not Recovered/Not Resolved]
  - Wound complication [Not Recovered/Not Resolved]
  - Limb injury [Recovering/Resolving]
  - Seizure [Recovered/Resolved]
  - Choking [Recovered/Resolved]
  - Wound secretion [Not Recovered/Not Resolved]

NARRATIVE: CASE EVENT DATE: 201702
